FAERS Safety Report 8510801-6 (Version None)
Quarter: 2012Q3

REPORT INFORMATION
  Report Type: 
  Country: None (occurrence: None)
  Receive Date: 20120709
  Receipt Date: 20120709
  Transmission Date: 20120928
  Serious: Yes (Hospitalization)
  Sender: FDA-Public Use
  Company Number: None

PATIENT
  Sex: Male
  Weight: 61 kg

DRUGS (3)
  1. BEVACIZUMAB (RHUMAB VEGF) [Suspect]
     Dosage: 305 MG
     Dates: end: 20110301
  2. FLUOROURACIL [Suspect]
     Dosage: 4928 MG
     Dates: end: 20110303
  3. IRINOTECAN HYDROCHLORIDE [Suspect]
     Dosage: 317 MG
     Dates: end: 20110301

REACTIONS (5)
  - PEPTIC ULCER PERFORATION [None]
  - HYPOTENSION [None]
  - POST PROCEDURAL COMPLICATION [None]
  - METASTASES TO STOMACH [None]
  - PERITONITIS [None]
